FAERS Safety Report 11718628 (Version 2)
Quarter: 2015Q4

REPORT INFORMATION
  Report Type: Report from Study
  Country: JP (occurrence: JP)
  Receive Date: 20151110
  Receipt Date: 20151123
  Transmission Date: 20160304
  Serious: Yes (Hospitalization)
  Sender: FDA-Public Use
  Company Number: JP-VIFOR (INTERNATIONAL) INC.-VIT-2015-03063

PATIENT
  Age: 59 Year
  Sex: Female

DRUGS (13)
  1. MICARDIS [Concomitant]
     Active Substance: TELMISARTAN
     Route: 048
     Dates: end: 20140417
  2. TRAZENTA [Concomitant]
     Active Substance: LINAGLIPTIN
     Indication: DIABETIC NEPHROPATHY
     Dates: end: 20140131
  3. MIRCERA [Suspect]
     Active Substance: METHOXY POLYETHYLENE GLYCOL-EPOETIN BETA
     Indication: NEPHROGENIC ANAEMIA
     Route: 058
     Dates: start: 20130927, end: 20131025
  4. MIRCERA [Suspect]
     Active Substance: METHOXY POLYETHYLENE GLYCOL-EPOETIN BETA
     Route: 042
     Dates: start: 20131129, end: 20140404
  5. LUPRAC [Concomitant]
     Active Substance: TORSEMIDE
     Route: 048
     Dates: end: 20131227
  6. NATRIX [Concomitant]
     Active Substance: INDAPAMIDE
     Route: 048
     Dates: end: 20131227
  7. JUSO [Concomitant]
     Active Substance: SODIUM BICARBONATE
     Route: 048
     Dates: start: 20140307, end: 20140417
  8. FESIN [Concomitant]
     Active Substance: IRON SUCROSE
     Route: 042
     Dates: start: 20131227, end: 20140417
  9. NATRIX [Concomitant]
     Active Substance: INDAPAMIDE
     Route: 048
     Dates: start: 20131228, end: 20140417
  10. CALTAN [Concomitant]
     Active Substance: CALCIUM CARBONATE
     Route: 048
     Dates: start: 20131227, end: 20140404
  11. CADUET [Concomitant]
     Active Substance: AMLODIPINE BESYLATE\ATORVASTATIN CALCIUM
     Route: 048
     Dates: start: 20140404
  12. LASIX [Concomitant]
     Active Substance: FUROSEMIDE
     Route: 048
     Dates: start: 20131228, end: 20140417
  13. FEBURIC [Concomitant]
     Active Substance: FEBUXOSTAT
     Route: 048
     Dates: end: 20140404

REACTIONS (4)
  - Hypertension [Unknown]
  - Renal failure [Recovered/Resolved]
  - Gastroenteritis eosinophilic [Recovered/Resolved]
  - Eosinophilia [Recovered/Resolved]

NARRATIVE: CASE EVENT DATE: 2013
